FAERS Safety Report 14607554 (Version 1)
Quarter: 2018Q1

REPORT INFORMATION
  Report Type: Spontaneous
  Country: FR (occurrence: FR)
  Receive Date: 20180307
  Receipt Date: 20180307
  Transmission Date: 20180509
  Serious: Yes (Hospitalization)
  Sender: FDA-Public Use
  Company Number: PHHY2018FR036606

PATIENT
  Age: 72 Year
  Sex: Male
  Weight: 63.5 kg

DRUGS (10)
  1. PARACETAMOL [Concomitant]
     Active Substance: ACETAMINOPHEN
     Indication: PRODUCT USED FOR UNKNOWN INDICATION
     Dosage: 3 G, QD
     Route: 065
  2. LOXEN (NICARDIPINE HYDROCHLORIDE) [Suspect]
     Active Substance: NICARDIPINE HYDROCHLORIDE
     Indication: HYPERTENSION
     Dosage: 50 MG, QD
     Route: 048
     Dates: start: 20170705, end: 20170712
  3. PANTOPRAZOLE SODIUM. [Suspect]
     Active Substance: PANTOPRAZOLE SODIUM
     Indication: PROPHYLAXIS AGAINST GASTROINTESTINAL ULCER
     Dosage: 40 MG, QD
     Route: 040
     Dates: start: 20170630, end: 20170718
  4. BROMAZEPAM ARROW [Suspect]
     Active Substance: BROMAZEPAM
     Indication: ANXIETY
     Dosage: 3 MG, QD
     Route: 048
     Dates: start: 20170718, end: 20170804
  5. LOXEN (NICARDIPINE HYDROCHLORIDE) [Suspect]
     Active Substance: NICARDIPINE HYDROCHLORIDE
     Dosage: 100 MG, QD
     Route: 048
     Dates: start: 20170713, end: 20170804
  6. OROZAMUDOL [Concomitant]
     Active Substance: TRAMADOL
     Indication: PRODUCT USED FOR UNKNOWN INDICATION
     Dosage: 3 DF, QD
     Route: 048
  7. PANTOPRAZOLE MYLAN [Suspect]
     Active Substance: PANTOPRAZOLE SODIUM
     Indication: PROPHYLAXIS AGAINST GASTROINTESTINAL ULCER
     Dosage: 40 MG, QD
     Route: 048
     Dates: start: 20170718, end: 20170804
  8. LOVENOX [Concomitant]
     Active Substance: ENOXAPARIN SODIUM
     Indication: PRODUCT USED FOR UNKNOWN INDICATION
     Dosage: 2 DF, QD
     Route: 058
  9. VANCOMYCIN SANDOZ [Suspect]
     Active Substance: VANCOMYCIN
     Indication: INFECTION
     Dosage: UNK
     Route: 065
  10. BISOPROLOL SANDOZ [Concomitant]
     Active Substance: BISOPROLOL
     Indication: PRODUCT USED FOR UNKNOWN INDICATION
     Dosage: 5 MG, QD
     Route: 048

REACTIONS (1)
  - Drug reaction with eosinophilia and systemic symptoms [Recovered/Resolved with Sequelae]

NARRATIVE: CASE EVENT DATE: 20170721
